FAERS Safety Report 21120878 (Version 1)
Quarter: 2022Q3

REPORT INFORMATION
  Report Type: Spontaneous
  Country: US (occurrence: US)
  Receive Date: 20220722
  Receipt Date: 20220722
  Transmission Date: 20221026
  Serious: Yes (Hospitalization, Other)
  Sender: FDA-Public Use
  Company Number: US-BoehringerIngelheim-2022-BI-182642

PATIENT
  Sex: Male

DRUGS (7)
  1. SPIRIVA [Suspect]
     Active Substance: TIOTROPIUM BROMIDE MONOHYDRATE
     Indication: Product used for unknown indication
  2. Abrocitinib (ABROCITINIB) Tablet [Concomitant]
     Indication: Dermatitis atopic
     Route: 048
     Dates: start: 20180718
  3. SYMBICORT [Concomitant]
     Active Substance: BUDESONIDE\FORMOTEROL FUMARATE DIHYDRATE
     Indication: Asthma
     Dates: start: 20190501
  4. ZOLOFT [Concomitant]
     Active Substance: SERTRALINE HYDROCHLORIDE
     Indication: Anxiety
  5. SINGULAIR (MONTELUKAST SODIUM) [Concomitant]
     Indication: Seasonal allergy
     Route: 048
     Dates: start: 20190501
  6. ALBUTEROL [Concomitant]
     Active Substance: ALBUTEROL
     Indication: Asthma
     Dosage: 25MG/3ML, AS NEEDED
     Route: 048
  7. CONCERTA [Concomitant]
     Active Substance: METHYLPHENIDATE HYDROCHLORIDE
     Indication: Attention deficit hyperactivity disorder

REACTIONS (2)
  - Asthma [Recovered/Resolved]
  - Lung opacity [Unknown]

NARRATIVE: CASE EVENT DATE: 20190513
